FAERS Safety Report 6454833-0 (Version None)
Quarter: 2009Q4

REPORT INFORMATION
  Report Type: 
  Country: None (occurrence: None)
  Receive Date: 20091124
  Receipt Date: 20091117
  Transmission Date: 20100525
  Serious: Yes (Other)
  Sender: FDA-Public Use
  Company Number: JP-PFIZER INC-2009300090

PATIENT

DRUGS (3)
  1. CABASER [Suspect]
     Route: 048
  2. CARBIDOPA AND LEVODOPA [Concomitant]
  3. SELEGILINE HYDROCHLORIDE [Concomitant]

REACTIONS (2)
  - DELUSION [None]
  - HALLUCINATION [None]
